FAERS Safety Report 12080733 (Version 1)
Quarter: 2016Q1

REPORT INFORMATION
  Report Type: Spontaneous
  Country: US (occurrence: US)
  Receive Date: 20160216
  Receipt Date: 20160216
  Transmission Date: 20160526
  Serious: Yes (Other)
  Sender: FDA-Public Use
  Company Number: US-AMGEN-USASP2016017407

PATIENT
  Age: 77 Year
  Sex: Female

DRUGS (1)
  1. PROLIA [Suspect]
     Active Substance: DENOSUMAB
     Indication: PRODUCT USED FOR UNKNOWN INDICATION
     Dosage: UNK
     Route: 065
     Dates: start: 2013, end: 201512

REACTIONS (6)
  - Pain in jaw [Unknown]
  - Nephrolithiasis [Unknown]
  - Back pain [Unknown]
  - Cataract operation [Unknown]
  - Colonoscopy [Unknown]
  - Chest pain [Unknown]

NARRATIVE: CASE EVENT DATE: 20160208
